FAERS Safety Report 22116744 (Version 2)
Quarter: 2023Q2

REPORT INFORMATION
  Report Type: Spontaneous
  Country: CH (occurrence: CH)
  Receive Date: 20230320
  Receipt Date: 20230427
  Transmission Date: 20230721
  Serious: Yes (Hospitalization, Other)
  Sender: FDA-Public Use
  Company Number: CH-009507513-2303CHE006406

PATIENT
  Age: 83 Year
  Sex: Male
  Weight: 65 kg

DRUGS (6)
  1. KEYTRUDA [Suspect]
     Active Substance: PEMBROLIZUMAB
     Indication: Clear cell renal cell carcinoma
     Dosage: 200 MILLIGRAM, Q3W
     Dates: start: 20211022, end: 20211129
  2. KEYTRUDA [Suspect]
     Active Substance: PEMBROLIZUMAB
     Dosage: 200 MILLIGRAM, Q3W
     Dates: start: 20220127
  3. LENVATINIB MESYLATE [Suspect]
     Active Substance: LENVATINIB MESYLATE
     Indication: Clear cell renal cell carcinoma
     Dosage: 10 MILLIGRAM
     Route: 048
     Dates: start: 202110, end: 20211231
  4. LENVATINIB MESYLATE [Suspect]
     Active Substance: LENVATINIB MESYLATE
     Dosage: 4 MILLIGRAM
     Route: 048
     Dates: start: 20220120
  5. LENVATINIB MESYLATE [Suspect]
     Active Substance: LENVATINIB MESYLATE
     Dosage: UNK
     Route: 048
     Dates: start: 202207, end: 202301
  6. CABOZANTINIB [Suspect]
     Active Substance: CABOZANTINIB
     Dosage: UNK
     Dates: start: 202302

REACTIONS (19)
  - Monoplegia [Unknown]
  - Malignant neoplasm progression [Unknown]
  - Immune-mediated lung disease [Recovered/Resolved]
  - Cardiac failure [Unknown]
  - Parenteral nutrition [Unknown]
  - Cognitive disorder [Unknown]
  - Personality change [Unknown]
  - Eastern Cooperative Oncology Group performance status abnormal [Unknown]
  - Karnofsky scale abnormal [Unknown]
  - Pleural effusion [Unknown]
  - Neoplasm [Unknown]
  - Osteolysis [Unknown]
  - Pulmonary mass [Unknown]
  - Mucosal inflammation [Unknown]
  - Haemoglobin decreased [Unknown]
  - Weight decreased [Unknown]
  - Fatigue [Unknown]
  - Cough [Unknown]
  - Product use issue [Unknown]

NARRATIVE: CASE EVENT DATE: 20211129
